FAERS Safety Report 4762631-9 (Version None)
Quarter: 2005Q3

REPORT INFORMATION
  Report Type: 
  Country: None (occurrence: None)
  Receive Date: 20050907
  Receipt Date: 20050901
  Transmission Date: 20060218
  Serious: Yes (Hospitalization)
  Sender: FDA-Public Use
  Company Number: FR-GLAXOSMITHKLINE-B0392659A

PATIENT
  Age: 94 Year
  Sex: Female
  Weight: 56 kg

DRUGS (4)
  1. ZELITREX [Suspect]
     Dosage: 2UNIT THREE TIMES PER DAY
     Route: 048
     Dates: start: 20050809, end: 20050817
  2. ZANIDIP [Concomitant]
     Dosage: 1UNIT PER DAY
  3. PIRACETAM [Concomitant]
     Dosage: 3UNIT PER DAY
  4. CITALOPRAM HYDROBROMIDE [Concomitant]
     Dosage: 1UNIT PER DAY

REACTIONS (5)
  - BLOOD CREATININE INCREASED [None]
  - CONFUSIONAL STATE [None]
  - DEHYDRATION [None]
  - GENERAL PHYSICAL HEALTH DETERIORATION [None]
  - PRESCRIBED OVERDOSE [None]
